FAERS Safety Report 21348970 (Version 4)
Quarter: 2022Q4

REPORT INFORMATION
  Report Type: Report from Study
  Country: US (occurrence: US)
  Receive Date: 20220919
  Receipt Date: 20221205
  Transmission Date: 20230112
  Serious: Yes (Other)
  Sender: FDA-Public Use
  Company Number: US-NOVARTISPH-NVSC2022US208907

PATIENT
  Sex: Female

DRUGS (1)
  1. TABRECTA [Suspect]
     Active Substance: CAPMATINIB
     Indication: Lung neoplasm malignant
     Dosage: 400 MG, BID
     Route: 048
     Dates: start: 20220922

REACTIONS (14)
  - Thrombosis [Unknown]
  - Dementia Alzheimer^s type [Unknown]
  - Urinary tract infection [Unknown]
  - Oxygen saturation decreased [Unknown]
  - Hypersomnia [Unknown]
  - Feeding disorder [Unknown]
  - Abdominal pain [Unknown]
  - Feeling abnormal [Unknown]
  - Tumour inflammation [Unknown]
  - Joint swelling [Unknown]
  - Bone pain [Unknown]
  - Pyrexia [Unknown]
  - Vomiting [Recovering/Resolving]
  - Pleural effusion [Unknown]
